FAERS Safety Report 9743601 (Version 1)
Quarter: 2013Q4

REPORT INFORMATION
  Report Type: Spontaneous
  Country: US (occurrence: US)
  Receive Date: 20131210
  Receipt Date: 20131210
  Transmission Date: 20140711
  Serious: No
  Sender: FDA-Public Use
  Company Number: US-TEVA-382733USA

PATIENT
  Age: 25 Year
  Sex: Female
  Weight: 68.1 kg

DRUGS (3)
  1. PARAGARD 380A [Suspect]
     Indication: CONTRACEPTION
     Route: 015
     Dates: start: 20121015, end: 20130108
  2. PARAGARD 380A [Suspect]
     Route: 015
     Dates: start: 20130108, end: 20130115
  3. EXCEDRIN [Concomitant]
     Indication: HEADACHE

REACTIONS (2)
  - Device expulsion [Recovered/Resolved]
  - Device expulsion [Recovered/Resolved]
